FAERS Safety Report 6530882-9 (Version None)
Quarter: 2010Q1

REPORT INFORMATION
  Report Type: 
  Country: None (occurrence: None)
  Receive Date: 20100108
  Receipt Date: 20090721
  Transmission Date: 20100710
  Serious: No
  Sender: FDA-Public Use
  Company Number: A0782572A

PATIENT
  Age: 50 Year
  Sex: Male

DRUGS (5)
  1. LOVAZA [Suspect]
     Indication: HIGH DENSITY LIPOPROTEIN INCREASED
     Dosage: 4G PER DAY
     Route: 048
     Dates: start: 20060101
  2. CRESTOR [Concomitant]
  3. NIASPAN [Concomitant]
  4. VITAMIN D3 [Concomitant]
  5. METFORMIN HYDROCHLORIDE [Concomitant]

REACTIONS (2)
  - MEDICATION RESIDUE [None]
  - PRODUCT QUALITY ISSUE [None]
